FAERS Safety Report 7052172-0 (Version None)
Quarter: 2010Q4

REPORT INFORMATION
  Report Type: 
  Country: None (occurrence: None)
  Receive Date: 20101019
  Receipt Date: 20100910
  Transmission Date: 20110411
  Serious: Yes (Death, Hospitalization, Other)
  Sender: FDA-Public Use
  Company Number: US-BAXTER-2009BH001156

PATIENT
  Age: 28 Year
  Sex: Female

DRUGS (6)
  1. HEPARIN SODIUM INJECTION [Suspect]
     Indication: HAEMODIALYSIS
     Route: 010
     Dates: start: 20080701
  2. HEPARIN SODIUM INJECTION [Suspect]
     Route: 042
     Dates: start: 20080501
  3. HEPARIN SODIUM INJECTION [Suspect]
     Route: 065
     Dates: start: 20081001
  4. METOPROLOL [Concomitant]
     Indication: PRODUCT USED FOR UNKNOWN INDICATION
     Route: 048
  5. CLONIDINE [Concomitant]
     Indication: PRODUCT USED FOR UNKNOWN INDICATION
     Route: 048
  6. MEDROXYPROGESTERONE [Concomitant]
     Indication: PRODUCT USED FOR UNKNOWN INDICATION
     Route: 065

REACTIONS (35)
  - ABDOMINAL PAIN [None]
  - ABDOMINAL PAIN UPPER [None]
  - ASTHENIA [None]
  - BACK PAIN [None]
  - BLOOD PRESSURE DECREASED [None]
  - CARDIAC DISORDER [None]
  - CHEST PAIN [None]
  - CHILLS [None]
  - CONGESTIVE CARDIOMYOPATHY [None]
  - CONVULSION [None]
  - DEHYDRATION [None]
  - DIARRHOEA [None]
  - DYSPNOEA [None]
  - ELECTROMECHANICAL DISSOCIATION [None]
  - ERYTHEMA [None]
  - EYELID OEDEMA [None]
  - HAEMORRHAGE [None]
  - HEADACHE [None]
  - HEART RATE IRREGULAR [None]
  - HYPERHIDROSIS [None]
  - HYPOXIC-ISCHAEMIC ENCEPHALOPATHY [None]
  - ISCHAEMIC CARDIOMYOPATHY [None]
  - MUSCLE SPASMS [None]
  - NAUSEA [None]
  - OEDEMA PERIPHERAL [None]
  - OLIGURIA [None]
  - ORGAN FAILURE [None]
  - PHARYNGEAL OEDEMA [None]
  - PULMONARY THROMBOSIS [None]
  - PYREXIA [None]
  - RASH [None]
  - RENAL FAILURE CHRONIC [None]
  - SYNCOPE [None]
  - URTICARIA [None]
  - VOMITING [None]
